FAERS Safety Report 8849784 (Version 2)
Quarter: 2012Q4

REPORT INFORMATION
  Report Type: Report from Study
  Country: FR (occurrence: FR)
  Receive Date: 20121019
  Receipt Date: 20121025
  Transmission Date: 20130627
  Serious: Yes (Other)
  Sender: FDA-Public Use
  Company Number: PHHO2012FR015008

PATIENT
  Age: 16 Year
  Sex: Male
  Weight: 54 kg

DRUGS (8)
  1. ZOLEDRONATE [Suspect]
     Indication: BONE SARCOMA
     Dosage: 2.50 mg, UNK (2.50 mg before the event, cumulative dose was 7.3 mg)
     Route: 042
     Dates: start: 20111223
  2. LOVENOX [Suspect]
     Indication: ANTICOAGULANT THERAPY
     Dosage: UNK
     Route: 058
     Dates: start: 20120421, end: 20120727
  3. METHOTREXATE [Concomitant]
     Dosage: 19.261 mg, UNK (19.261 mg last dose before event, 13280 mg was cumulative dose)
     Route: 042
     Dates: start: 20111220
  4. ETOPOSIDE PHOSPHATE [Concomitant]
     Dosage: 136.756 mg, UNK (136.756 mg last dose before SAE, 600 mg was cumulative dose)
     Route: 042
     Dates: start: 20120117, end: 20120227
  5. IFOSFAMIDE [Concomitant]
     Dosage: 4975.339 mg, UNK (4975.339 mg last dose before event, 37626 mg cumulative dose)
     Route: 042
     Dates: start: 20120117
  6. CALCIUM [Concomitant]
     Indication: SUPPLEMENTATION THERAPY
     Dosage: UNK
     Route: 048
     Dates: start: 20111231
  7. STEROGYL [Concomitant]
     Indication: SUPPLEMENTATION THERAPY
     Dosage: UNK
     Route: 048
     Dates: start: 20111231
  8. VITAMIN D [Concomitant]
     Indication: BONE SARCOMA

REACTIONS (2)
  - Compartment syndrome [Recovered/Resolved]
  - Pain in extremity [Recovered/Resolved]
